FAERS Safety Report 5676137-6 (Version None)
Quarter: 2008Q1

REPORT INFORMATION
  Report Type: 
  Country: None (occurrence: None)
  Receive Date: 20080321
  Receipt Date: 20080317
  Transmission Date: 20080703
  Serious: Yes (Other)
  Sender: FDA-Public Use
  Company Number: US-BRISTOL-MYERS SQUIBB COMPANY-14114003

PATIENT
  Sex: Male

DRUGS (7)
  1. ATAZANAVIR SULFATE [Interacting]
     Dates: start: 20050401
  2. DIDANOSINE [Suspect]
     Dates: start: 20040101
  3. RITONAVIR [Interacting]
     Dates: start: 20050401
  4. FLUTICASONE [Interacting]
     Dates: start: 20050701
  5. TENOFOVIR [Suspect]
     Dates: start: 20040101
  6. LOPINAVIR AND RITONAVIR [Suspect]
     Dates: start: 20040101
  7. SALMETEROL [Concomitant]
     Indication: ASTHMA
     Route: 055
     Dates: start: 20050701

REACTIONS (4)
  - CUSHING'S SYNDROME [None]
  - DRUG INTERACTION [None]
  - DRUG RESISTANCE [None]
  - KAPOSI'S SARCOMA [None]
